FAERS Safety Report 11912108 (Version 1)
Quarter: 2016Q1

REPORT INFORMATION
  Report Type: Spontaneous
  Country: ES (occurrence: ES)
  Receive Date: 20160112
  Receipt Date: 20160112
  Transmission Date: 20160526
  Serious: Yes (Other)
  Sender: FDA-Public Use
  Company Number: ES-MYLANLABS-2016M1000906

PATIENT

DRUGS (2)
  1. SUNITINIB [Suspect]
     Active Substance: SUNITINIB
     Indication: GASTROINTESTINAL STROMAL TUMOUR
     Dosage: 50 MG/DAY FOR 4 WEEKS ON/2 WEEKS OFF
     Route: 048
  2. IMATINIB [Concomitant]
     Active Substance: IMATINIB
     Indication: GASTROINTESTINAL STROMAL TUMOUR
     Route: 065

REACTIONS (1)
  - Pseudoporphyria [Recovering/Resolving]
